FAERS Safety Report 15402883 (Version 1)
Quarter: 2018Q3

REPORT INFORMATION
  Report Type: Spontaneous
  Country: US (occurrence: US)
  Receive Date: 20180919
  Receipt Date: 20180919
  Transmission Date: 20181010
  Serious: Yes (Other)
  Sender: FDA-Public Use
  Company Number: US-009507513-1806USA012192

PATIENT
  Sex: Male
  Weight: 99.23 kg

DRUGS (19)
  1. PREDNISONE. [Suspect]
     Active Substance: PREDNISONE
     Dosage: 80 MG, QD
     Route: 048
     Dates: start: 20180630, end: 20180716
  2. TRIBENZOR [Concomitant]
     Active Substance: AMLODIPINE BESYLATE\HYDROCHLOROTHIAZIDE\OLMESARTAN MEDOXOMIL
     Route: 048
  3. KEYTRUDA [Suspect]
     Active Substance: PEMBROLIZUMAB
     Indication: METASTATIC MALIGNANT MELANOMA
     Dosage: 190 MG, ONCE
     Route: 042
     Dates: start: 20170502, end: 20170502
  4. PREDNISONE. [Suspect]
     Active Substance: PREDNISONE
     Dosage: 40 MG, QD
     Route: 048
     Dates: start: 20180717, end: 20180723
  5. PREDNISONE. [Suspect]
     Active Substance: PREDNISONE
     Dosage: 15 MG, QD
     Route: 048
     Dates: start: 20180731, end: 20180804
  6. ELIQUIS [Concomitant]
     Active Substance: APIXABAN
     Route: 048
  7. BENADRYL [Concomitant]
     Active Substance: DIPHENHYDRAMINE HYDROCHLORIDE
     Route: 048
  8. PREDNISONE. [Suspect]
     Active Substance: PREDNISONE
     Dosage: 2.5 MG, QD
     Route: 048
     Dates: start: 20180815, end: 20180817
  9. FLECAINIDE [Concomitant]
     Active Substance: FLECAINIDE
     Route: 048
  10. ZYRTEC [Concomitant]
     Active Substance: CETIRIZINE HYDROCHLORIDE
     Route: 048
  11. KEYTRUDA [Suspect]
     Active Substance: PEMBROLIZUMAB
     Dosage: 200 MG Q 21 DAYS
     Route: 042
     Dates: start: 20170523, end: 20180514
  12. EUCERIN CREME [Concomitant]
     Route: 061
  13. PREDNISONE. [Suspect]
     Active Substance: PREDNISONE
     Dosage: 20 MG, QD
     Dates: start: 20180724, end: 20180730
  14. PREDNISONE. [Suspect]
     Active Substance: PREDNISONE
     Dosage: 10 MG, QD
     Route: 048
     Dates: start: 20180805, end: 20180809
  15. PREDNISONE. [Suspect]
     Active Substance: PREDNISONE
     Dosage: 5 MG, QD
     Route: 048
     Dates: start: 20180810, end: 20180814
  16. CIALIS [Concomitant]
     Active Substance: TADALAFIL
     Route: 048
  17. PREDNISONE. [Suspect]
     Active Substance: PREDNISONE
     Dosage: 2.5 MG, QOD
     Route: 048
     Dates: start: 20180818, end: 20180824
  18. HYDROCORTISONE. [Concomitant]
     Active Substance: HYDROCORTISONE
     Route: 061
  19. METOPROLOL TARTRATE. [Concomitant]
     Active Substance: METOPROLOL TARTRATE
     Route: 048

REACTIONS (13)
  - Agitation [Unknown]
  - Cystitis [Unknown]
  - Pulmonary mass [Recovered/Resolved]
  - Pulmonary mass [Recovered/Resolved]
  - Colon adenoma [Recovered/Resolved]
  - Sleep disorder [Unknown]
  - Venous thrombosis limb [Unknown]
  - Panniculitis [Recovering/Resolving]
  - Knee operation [Unknown]
  - Fatigue [Unknown]
  - Cutaneous sarcoidosis [Recovering/Resolving]
  - Hepatic cyst [Unknown]
  - Blood urea increased [Unknown]

NARRATIVE: CASE EVENT DATE: 2017
